FAERS Safety Report 23101509 (Version 2)
Quarter: 2023Q4

REPORT INFORMATION
  Report Type: Spontaneous
  Country: CA (occurrence: CA)
  Receive Date: 20231024
  Receipt Date: 20231110
  Transmission Date: 20240110
  Serious: Yes (Other)
  Sender: FDA-Public Use
  Company Number: CA-BRISTOL-MYERS SQUIBB COMPANY-2023-148970

PATIENT
  Age: 74 Year
  Sex: Male
  Weight: 61.6 kg

DRUGS (5)
  1. LUSPATERCEPT [Suspect]
     Active Substance: LUSPATERCEPT
     Indication: Product used for unknown indication
  2. VIDAZA [Suspect]
     Active Substance: AZACITIDINE
     Indication: Myelodysplastic syndrome
  3. RITUXIMAB [Suspect]
     Active Substance: RITUXIMAB
     Indication: Immune thrombocytopenia
     Dosage: 375 MG/M2, WEEKLY X 4 DOSES?626MG REPEATS 4 DOSES
     Route: 042
  4. ASPIRIN [Concomitant]
     Active Substance: ASPIRIN
     Indication: Product used for unknown indication
  5. JADENU [Concomitant]
     Active Substance: DEFERASIROX
     Indication: Iron overload

REACTIONS (3)
  - Pulmonary toxicity [Unknown]
  - Haematological infection [Unknown]
  - Therapeutic product effect incomplete [Unknown]
